FAERS Safety Report 5066743-4 (Version None)
Quarter: 2006Q3

REPORT INFORMATION
  Report Type: 
  Country: None (occurrence: None)
  Receive Date: 20060710
  Receipt Date: 20050802
  Transmission Date: 20061208
  Serious: Yes (Other)
  Sender: FDA-Public Use
  Company Number: US-2005-008529

PATIENT
  Age: 68 Year
  Sex: Female

DRUGS (4)
  1. ULTRAVIST 300 [Suspect]
     Indication: COMPUTERISED TOMOGRAM ABDOMEN
     Dosage: 150 ML, 1 DOSE, INTRAVENOUS
     Route: 042
     Dates: start: 20050504, end: 20050504
  2. HYDROCODONE BITARTRATE [Concomitant]
  3. CIPRO [Concomitant]
  4. ATENOLOL [Concomitant]

REACTIONS (5)
  - CHOKING SENSATION [None]
  - DIZZINESS [None]
  - DRUG HYPERSENSITIVITY [None]
  - FLUSHING [None]
  - URTICARIA [None]
